FAERS Safety Report 16910387 (Version 1)
Quarter: 2019Q4

REPORT INFORMATION
  Report Type: Report from Study
  Country: TH (occurrence: TH)
  Receive Date: 20191011
  Receipt Date: 20191011
  Transmission Date: 20200122
  Serious: Yes (Hospitalization)
  Sender: FDA-Public Use
  Company Number: TH-REGENERON PHARMACEUTICALS, INC.-2019-43025

PATIENT

DRUGS (10)
  1. ONDANSETRON [Concomitant]
     Active Substance: ONDANSETRON
     Indication: PROPHYLAXIS OF NAUSEA AND VOMITING
     Dosage: 1 DF, BID
     Route: 048
     Dates: start: 20190405, end: 20190409
  2. FOLIC ACID. [Concomitant]
     Active Substance: FOLIC ACID
     Indication: PROPHYLAXIS
     Dosage: 1 DF, UNK
     Route: 048
     Dates: start: 20190405, end: 20190505
  3. CARBOPLATIN. [Suspect]
     Active Substance: CARBOPLATIN
     Indication: LUNG ADENOCARCINOMA STAGE IV
     Dosage: 6 AUC IV, Q3W
     Route: 042
     Dates: start: 20190405
  4. CHLORPHENIRAMINE MALEATE. [Concomitant]
     Active Substance: CHLORPHENIRAMINE MALEATE
     Indication: RASH MACULO-PAPULAR
     Dosage: 1 AMP, Q8H
     Route: 042
     Dates: start: 201904, end: 20190416
  5. IPILIMUMAB [Suspect]
     Active Substance: IPILIMUMAB
     Indication: LUNG ADENOCARCINOMA STAGE IV
     Dosage: 50 MG, Q6W
     Route: 042
     Dates: start: 20190405
  6. DEXAMETHASONE. [Concomitant]
     Active Substance: DEXAMETHASONE
     Indication: PROPHYLAXIS OF NAUSEA AND VOMITING
     Dosage: 4 MG, BID
     Route: 048
     Dates: start: 20190405, end: 20190409
  7. ASPIRIN                            /00002701/ [Concomitant]
     Active Substance: ASPIRIN
     Indication: MYOCARDIAL ISCHAEMIA
     Dosage: 81 MG, BID
     Route: 048
     Dates: start: 20140813
  8. CEMIPLIMAB [Suspect]
     Active Substance: CEMIPLIMAB
     Indication: LUNG ADENOCARCINOMA STAGE IV
     Dosage: 350 MG, Q3W
     Route: 042
     Dates: start: 20190405
  9. PEMETREXED. [Suspect]
     Active Substance: PEMETREXED
     Indication: LUNG ADENOCARCINOMA STAGE IV
     Dosage: 500 MG/M2, Q3W
     Route: 042
     Dates: start: 20190405
  10. RANITIDINE. [Concomitant]
     Active Substance: RANITIDINE
     Indication: RASH MACULO-PAPULAR
     Dosage: 50 MG, Q6H
     Route: 042
     Dates: start: 201904, end: 20190416

REACTIONS (1)
  - Febrile neutropenia [Recovered/Resolved]

NARRATIVE: CASE EVENT DATE: 20190414
